FAERS Safety Report 21465623 (Version 1)
Quarter: 2022Q4

REPORT INFORMATION
  Report Type: Spontaneous
  Country: US (occurrence: None)
  Receive Date: 20221014
  Receipt Date: 20221014
  Transmission Date: 20230112
  Serious: Yes (unspecified)
  Sender: FDA-Public Use
  Company Number: None

PATIENT
  Age: 67 Year
  Sex: Male
  Weight: 106 kg

DRUGS (2)
  1. OXYBUTYNIN CHLORIDE [Suspect]
     Active Substance: OXYBUTYNIN CHLORIDE
     Indication: Benign prostatic hyperplasia
     Dosage: FREQUENCY : TWICE A DAY;?
     Route: 048
     Dates: start: 20211110, end: 20211115
  2. OXYBUTYNIN CHLORIDE [Suspect]
     Active Substance: OXYBUTYNIN CHLORIDE
     Indication: Lower urinary tract symptoms

REACTIONS (1)
  - Urinary retention [None]

NARRATIVE: CASE EVENT DATE: 20211114
